FAERS Safety Report 9219514 (Version 6)
Quarter: 2014Q1

REPORT INFORMATION
  Report Type: Spontaneous
  Country: US (occurrence: US)
  Receive Date: 20130409
  Receipt Date: 20140324
  Transmission Date: 20141002
  Serious: Yes (Hospitalization, Other)
  Sender: FDA-Public Use
  Company Number: US-009507513-1304USA002133

PATIENT
  Sex: Female
  Weight: 77.98 kg

DRUGS (6)
  1. FOSAMAX [Suspect]
     Indication: OSTEOPOROSIS PROPHYLAXIS
     Dosage: 70 MG, QW
     Route: 048
     Dates: start: 200108, end: 200803
  2. ALENDRONATE SODIUM [Suspect]
     Indication: OSTEOPOROSIS PROPHYLAXIS
     Dosage: 70 MG, QW
     Dates: start: 200803, end: 200811
  3. VITAMINS (UNSPECIFIED) [Concomitant]
     Dosage: 2 ONCE DAILY, QD
     Dates: start: 2000
  4. CHOLECALCIFEROL [Concomitant]
     Dosage: 2000 IU, 2 PER DAY
     Dates: start: 2000
  5. CALCIUM (UNSPECIFIED) (+) MAGNESIUM (UNSPECIFIED) [Concomitant]
     Dosage: 4 PER DAY
     Dates: start: 2000
  6. OMEGA-3 MARINE TRIGLYCERIDES [Concomitant]
     Dosage: UNK, QD
     Dates: start: 2000

REACTIONS (20)
  - Femur fracture [Unknown]
  - Intramedullary rod insertion [Unknown]
  - Intramedullary rod insertion [Unknown]
  - Thrombocytopenia [Unknown]
  - Haemorrhagic anaemia [Unknown]
  - Haemorrhagic anaemia [Unknown]
  - Colon cancer [Unknown]
  - Fall [Unknown]
  - Fall [Unknown]
  - Cholecystectomy [Unknown]
  - Hepatectomy [Unknown]
  - Stress fracture [Unknown]
  - Facet joint syndrome [Unknown]
  - Cataract operation [Unknown]
  - Device breakage [Unknown]
  - Bursitis [Unknown]
  - Leukopenia [Unknown]
  - Gastrointestinal stromal tumour [Unknown]
  - Bursitis [Unknown]
  - Gastrooesophageal reflux disease [Unknown]
